FAERS Safety Report 12583647 (Version 1)
Quarter: 2016Q3

REPORT INFORMATION
  Report Type: Spontaneous
  Country: JP (occurrence: JP)
  Receive Date: 20160722
  Receipt Date: 20160722
  Transmission Date: 20161109
  Serious: Yes (Hospitalization)
  Sender: FDA-Public Use
  Company Number: JP-HQ SPECIALTY-JP-2016INT000588

PATIENT
  Age: 71 Year
  Sex: Male

DRUGS (5)
  1. CAPECITABINE. [Suspect]
     Active Substance: CAPECITABINE
     Dosage: 400 MG, QD FROM THIRD CYCLE
     Route: 065
  2. CISPLATIN. [Suspect]
     Active Substance: CISPLATIN
     Dosage: 60 MG/M2, ON DAY 1 ONCE EVEY 3 WEEKS
     Route: 065
     Dates: start: 20110614
  3. TS-1 [Suspect]
     Active Substance: GIMERACIL\OTERACIL\TEGAFUR
     Indication: GASTRIC CANCER
     Dosage: UNK
     Route: 065
  4. CAPECITABINE. [Suspect]
     Active Substance: CAPECITABINE
     Indication: GASTRIC CANCER
     Dosage: 3000 MG, QD ON DAY 1-14
     Route: 065
     Dates: start: 20110614
  5. CISPLATIN. [Suspect]
     Active Substance: CISPLATIN
     Indication: GASTRIC CANCER
     Dosage: 60 MG/M2, ON DAY 8, ONCE EVERY 5 WEEKS
     Route: 065

REACTIONS (3)
  - Haematotoxicity [Unknown]
  - Nausea [Unknown]
  - Decreased appetite [Unknown]
